FAERS Safety Report 5381126-5 (Version None)
Quarter: 2007Q3

REPORT INFORMATION
  Report Type: 
  Country: None (occurrence: None)
  Receive Date: 20070706
  Receipt Date: 20070628
  Transmission Date: 20080115
  Serious: Yes (Congenital Anomaly)
  Sender: FDA-Public Use
  Company Number: US-SHR-US-2007-001464

PATIENT
  Age: 4 Month
  Sex: Female

DRUGS (1)
  1. BETASERON [Suspect]
     Indication: MULTIPLE SCLEROSIS
     Dosage: 6 MIU, EVERY 2D
     Route: 064
     Dates: start: 20031102, end: 20060817

REACTIONS (1)
  - ULTRASOUND ANTENATAL SCREEN ABNORMAL [None]
